FAERS Safety Report 10066331 (Version 2)
Quarter: 2014Q2

REPORT INFORMATION
  Report Type: Report from Study
  Country: US (occurrence: US)
  Receive Date: 20140408
  Receipt Date: 20140515
  Transmission Date: 20141212
  Serious: Yes (Other)
  Sender: FDA-Public Use
  Company Number: US-SA-2014SA038635

PATIENT
  Age: 55 Year
  Sex: Female

DRUGS (2)
  1. AUBAGIO [Suspect]
     Indication: MULTIPLE SCLEROSIS
     Route: 048
     Dates: start: 20130830
  2. AUBAGIO [Suspect]
     Indication: MULTIPLE SCLEROSIS
     Route: 048
     Dates: start: 201312, end: 20140301

REACTIONS (3)
  - Transient ischaemic attack [Not Recovered/Not Resolved]
  - Muscular weakness [Not Recovered/Not Resolved]
  - Drug ineffective [Unknown]
